FAERS Safety Report 11784834 (Version 1)
Quarter: 2015Q4

REPORT INFORMATION
  Report Type: Spontaneous
  Country: JP (occurrence: JP)
  Receive Date: 20151130
  Receipt Date: 20151130
  Transmission Date: 20160305
  Serious: Yes (Hospitalization, Other)
  Sender: FDA-Public Use
  Company Number: JP-009507513-1511JPN012629

PATIENT
  Age: 25 Year
  Sex: Female

DRUGS (2)
  1. ETIZOLAM [Suspect]
     Active Substance: ETIZOLAM
     Indication: SUICIDE ATTEMPT
     Dosage: 12 DF, ONCE
     Route: 048
     Dates: start: 20151113, end: 20151113
  2. BELSOMRA [Suspect]
     Active Substance: SUVOREXANT
     Indication: SUICIDE ATTEMPT
     Dosage: 840 MG, ONCE
     Route: 048
     Dates: start: 20151113, end: 20151113

REACTIONS (3)
  - Somnolence [Recovering/Resolving]
  - Intentional overdose [Unknown]
  - Suicide attempt [Recovering/Resolving]

NARRATIVE: CASE EVENT DATE: 20151113
